FAERS Safety Report 8311698-X (Version None)
Quarter: 2012Q2

REPORT INFORMATION
  Report Type: 
  Country: None (occurrence: None)
  Receive Date: 20120425
  Receipt Date: 20120423
  Transmission Date: 20120825
  Serious: No
  Sender: FDA-Public Use
  Company Number: US-PFIZER INC-2012100590

PATIENT
  Sex: Male
  Weight: 79.819 kg

DRUGS (2)
  1. ADVIL COLD AND SINUS [Suspect]
     Indication: HYPERSENSITIVITY
     Dosage: UNK, ONCE
     Route: 048
     Dates: start: 20120422, end: 20120422
  2. ADVIL COLD AND SINUS [Suspect]
     Indication: NASAL CONGESTION

REACTIONS (1)
  - FEELING JITTERY [None]
